FAERS Safety Report 8515175-2 (Version None)
Quarter: 2012Q3

REPORT INFORMATION
  Report Type: 
  Country: None (occurrence: None)
  Receive Date: 20120717
  Receipt Date: 20120710
  Transmission Date: 20120928
  Serious: Yes (Other)
  Sender: FDA-Public Use
  Company Number: US-GLAXOSMITHKLINE-A0984615A

PATIENT
  Sex: Female

DRUGS (1)
  1. REQUIP [Suspect]

REACTIONS (3)
  - VOMITING [None]
  - RESTLESS LEGS SYNDROME [None]
  - LOSS OF CONSCIOUSNESS [None]
